FAERS Safety Report 26136790 (Version 1)
Quarter: 2025Q4

REPORT INFORMATION
  Report Type: Report from Study
  Country: US (occurrence: US)
  Receive Date: 20251209
  Receipt Date: 20251209
  Transmission Date: 20260118
  Serious: Yes (Other)
  Sender: TEVA
  Company Number: US-TEVA-VS-3400114

PATIENT
  Age: 17 Year

DRUGS (1)
  1. CLARAVIS [Suspect]
     Active Substance: ISOTRETINOIN
     Indication: Product used for unknown indication
     Route: 065
     Dates: end: 2025

REACTIONS (2)
  - Depression [Unknown]
  - Back pain [Unknown]

NARRATIVE: CASE EVENT DATE: 20250101
